FAERS Safety Report 9254510 (Version 1)
Quarter: 2013Q2

REPORT INFORMATION
  Report Type: Spontaneous
  Country: FR (occurrence: FR)
  Receive Date: 20130425
  Receipt Date: 20130425
  Transmission Date: 20140414
  Serious: Yes (Other)
  Sender: FDA-Public Use
  Company Number: FR-009507513-1303FRA001419

PATIENT
  Age: 62 Year
  Sex: Male
  Weight: 65 kg

DRUGS (4)
  1. VICTRELIS [Suspect]
     Indication: HEPATITIS C
     Dosage: 12 DF, QD
     Route: 048
     Dates: start: 20121231
  2. REBETOL [Suspect]
     Indication: HEPATITIS C
     Dosage: 5 DF, UNK
     Route: 048
     Dates: start: 20121210
  3. PEGASYS [Concomitant]
  4. EBASTINE [Concomitant]

REACTIONS (2)
  - Erythema [Recovering/Resolving]
  - Eczema [Recovering/Resolving]
